FAERS Safety Report 19178906 (Version 3)
Quarter: 2021Q2

REPORT INFORMATION
  Report Type: Report from Study
  Country: US (occurrence: US)
  Receive Date: 20210426
  Receipt Date: 20210614
  Transmission Date: 20210717
  Serious: Yes (Other)
  Sender: FDA-Public Use
  Company Number: US-BIOVITRUM-2021US3876

PATIENT
  Sex: Female

DRUGS (1)
  1. KINERET [Suspect]
     Active Substance: ANAKINRA
     Indication: RHEUMATOID ARTHRITIS
     Route: 058
     Dates: start: 20210407

REACTIONS (11)
  - Nasopharyngitis [Unknown]
  - Urinary tract infection [Unknown]
  - Injection site pain [Unknown]
  - Rheumatoid arthritis [Unknown]
  - Respiratory tract infection [Unknown]
  - Injection site pruritus [Unknown]
  - Arthralgia [Unknown]
  - Injection site swelling [Unknown]
  - Injection site rash [Unknown]
  - Injection site erythema [Unknown]
  - Hypokinesia [Unknown]
